FAERS Safety Report 22234819 (Version 3)
Quarter: 2023Q2

REPORT INFORMATION
  Report Type: Spontaneous
  Country: RU (occurrence: RU)
  Receive Date: 20230420
  Receipt Date: 20230504
  Transmission Date: 20230722
  Serious: Yes (Other)
  Sender: FDA-Public Use
  Company Number: RU-UCBSA-2023019600

PATIENT
  Sex: Female

DRUGS (2)
  1. BRIVIACT [Suspect]
     Active Substance: BRIVARACETAM
     Indication: Product used for unknown indication
     Dosage: 100 MILLIGRAM, 2X/DAY (BID)
  2. VALPROIC ACID [Concomitant]
     Active Substance: VALPROIC ACID
     Indication: Product used for unknown indication
     Dosage: 750 MG IN THE MORNING/1,000 MG IN THE EVENING

REACTIONS (5)
  - Partial seizures [Unknown]
  - Generalised tonic-clonic seizure [Unknown]
  - Drug resistance [Unknown]
  - Dyspraxia [Unknown]
  - Speech disorder developmental [Unknown]
